FAERS Safety Report 5153064-4 (Version None)
Quarter: 2006Q4

REPORT INFORMATION
  Report Type: 
  Country: None (occurrence: None)
  Receive Date: 20061117
  Receipt Date: 20061108
  Transmission Date: 20070319
  Serious: Yes (Life-Threatening, Hospitalization)
  Sender: FDA-Public Use
  Company Number: JP-JNJFOC-20060700583

PATIENT
  Sex: Female
  Weight: 50 kg

DRUGS (10)
  1. REMICADE [Suspect]
     Dosage: DOSE UNKNOWN
     Route: 042
  2. REMICADE [Suspect]
     Route: 042
  3. REMICADE [Suspect]
     Route: 042
  4. REMICADE [Suspect]
     Indication: RHEUMATOID ARTHRITIS
     Route: 042
  5. RHEUMATREX [Concomitant]
     Indication: RHEUMATOID ARTHRITIS
     Route: 048
  6. MOBIC [Concomitant]
     Route: 048
  7. IRGAS [Concomitant]
     Route: 048
  8. CALONAL [Concomitant]
     Indication: PROPHYLAXIS
     Route: 048
  9. ALLELOCK [Concomitant]
     Indication: PROPHYLAXIS
     Route: 048
  10. FOLIAMIN [Concomitant]
     Route: 048

REACTIONS (1)
  - INFUSION RELATED REACTION [None]
